FAERS Safety Report 4764713-4 (Version None)
Quarter: 2005Q3

REPORT INFORMATION
  Report Type: 
  Country: None (occurrence: None)
  Receive Date: 20050909
  Receipt Date: 20050310
  Transmission Date: 20060218
  Serious: Yes (Hospitalization, Other)
  Sender: FDA-Public Use
  Company Number: US-MERCK-0503USA02060

PATIENT
  Age: 63 Year
  Sex: Female
  Weight: 61 kg

DRUGS (23)
  1. HYDROCODONE BITARTRATE + ACETAMINOPHEN [Concomitant]
     Indication: NECK PAIN
     Route: 065
  2. PROMETHAZINE [Concomitant]
     Route: 065
  3. IBUPROFEN [Concomitant]
     Route: 065
  4. AVAPRO [Concomitant]
     Indication: HYPERTENSION
     Route: 065
     Dates: start: 19980101, end: 20020101
  5. XANAX [Concomitant]
     Indication: DEPRESSION
     Route: 065
     Dates: start: 19990101
  6. XANAX [Concomitant]
     Indication: ANXIETY
     Route: 065
     Dates: start: 19990101
  7. NEXIUM [Concomitant]
     Route: 065
  8. VIOXX [Suspect]
     Indication: ARTHRITIS
     Route: 048
     Dates: start: 20000101, end: 20040401
  9. VIOXX [Suspect]
     Indication: BACK PAIN
     Route: 048
     Dates: start: 20000101, end: 20040401
  10. PREMARIN [Concomitant]
     Indication: HORMONE REPLACEMENT THERAPY
     Route: 065
     Dates: start: 19980101
  11. SYNTHROID [Concomitant]
     Route: 065
     Dates: start: 19950101
  12. PROZAC [Concomitant]
     Indication: DEPRESSION
     Route: 065
     Dates: start: 19990101, end: 20050101
  13. ZYRTEC [Concomitant]
     Route: 065
  14. PREVACID [Concomitant]
     Route: 065
  15. NORVASC [Concomitant]
     Route: 065
  16. ZOMAX [Concomitant]
     Route: 065
  17. ACIPHEX [Concomitant]
     Route: 065
  18. TAGAMET [Concomitant]
     Route: 065
  19. PAXIL [Concomitant]
     Indication: DEPRESSION
     Route: 065
     Dates: start: 20000501, end: 20000601
  20. ZANTAC [Concomitant]
     Route: 065
  21. BELLADONNA [Concomitant]
     Route: 065
  22. SKELAXIN [Concomitant]
     Route: 065
  23. HYDROCODONE BITARTRATE + ACETAMINOPHEN [Concomitant]
     Indication: ARTHRALGIA
     Route: 065

REACTIONS (18)
  - ANGINA PECTORIS [None]
  - ARTHROPATHY [None]
  - BACK PAIN [None]
  - BLOOD PRESSURE INADEQUATELY CONTROLLED [None]
  - CARDIOVASCULAR DISORDER [None]
  - CORONARY ARTERY DISEASE [None]
  - CORONARY ARTERY STENOSIS [None]
  - DRUG ADMINISTRATION ERROR [None]
  - DYSPNOEA [None]
  - EMOTIONAL DISTRESS [None]
  - GASTRIC DISORDER [None]
  - HERNIA [None]
  - INTERVERTEBRAL DISC PROTRUSION [None]
  - ISCHAEMIA [None]
  - MENISCUS LESION [None]
  - MITRAL VALVE PROLAPSE [None]
  - MYOCARDIAL INFARCTION [None]
  - NIGHT SWEATS [None]
